FAERS Safety Report 12706482 (Version 2)
Quarter: 2016Q4

REPORT INFORMATION
  Report Type: Spontaneous
  Country: US (occurrence: US)
  Receive Date: 20160901
  Receipt Date: 20161012
  Transmission Date: 20170207
  Serious: No
  Sender: FDA-Public Use
  Company Number: US-PFIZER INC-2016406724

PATIENT
  Sex: Female
  Weight: 63 kg

DRUGS (4)
  1. PRAVASTATIN. [Concomitant]
     Active Substance: PRAVASTATIN
     Indication: BLOOD CHOLESTEROL INCREASED
     Dosage: UNK
  2. METHYLPREDNISOLONE. [Suspect]
     Active Substance: METHYLPREDNISOLONE
     Indication: DERMATITIS CONTACT
     Dosage: 4 MG, UNK
     Dates: start: 20160825
  3. CORTISONE [Concomitant]
     Active Substance: CORTISONE\HYDROCORTISONE
     Indication: DERMATITIS CONTACT
  4. RISEDRONIC ACID [Concomitant]
     Active Substance: RISEDRONIC ACID
     Dosage: UNK

REACTIONS (3)
  - Dysgeusia [Unknown]
  - Throat irritation [Not Recovered/Not Resolved]
  - Product taste abnormal [Unknown]

NARRATIVE: CASE EVENT DATE: 20160825
